FAERS Safety Report 18495558 (Version 2)
Quarter: 2021Q2

REPORT INFORMATION
  Report Type: Report from Study
  Country: AU (occurrence: AU)
  Receive Date: 20201112
  Receipt Date: 20210513
  Transmission Date: 20210717
  Serious: Yes (Hospitalization, Other)
  Sender: FDA-Public Use
  Company Number: NVSC2020AU001061

PATIENT
  Age: 62 Year
  Sex: Female
  Weight: 97 kg

DRUGS (33)
  1. PARACETAMOL [Concomitant]
     Active Substance: ACETAMINOPHEN
     Indication: PAIN
     Dosage: UNK
     Route: 065
     Dates: start: 20191219, end: 20191219
  2. MEROPENEM. [Concomitant]
     Active Substance: MEROPENEM
     Indication: INFUSION RELATED REACTION
     Dosage: UNK
     Route: 065
     Dates: start: 20191208, end: 20191212
  3. ALLOPURINOL. [Concomitant]
     Active Substance: ALLOPURINOL
     Indication: PROPHYLAXIS
     Dosage: UNK
     Route: 065
     Dates: start: 20190401, end: 20191224
  4. RITUXIMAB. [Suspect]
     Active Substance: RITUXIMAB
     Indication: NON-HODGKIN^S LYMPHOMA
     Dosage: 760 MG, ONCE/SINGLE
     Route: 058
     Dates: start: 20191010
  5. FENTANYL. [Concomitant]
     Active Substance: FENTANYL
     Indication: INFUSION RELATED REACTION
     Dosage: UNK
     Route: 065
     Dates: start: 20191219, end: 20191219
  6. SODIUM CHLORIDE. [Concomitant]
     Active Substance: SODIUM CHLORIDE
     Indication: INFUSION RELATED REACTION
     Dosage: UNK
     Route: 065
     Dates: start: 20191219, end: 20191219
  7. FLUCONAZOLE. [Concomitant]
     Active Substance: FLUCONAZOLE
     Indication: PROPHYLAXIS
     Dosage: UNK
     Route: 065
     Dates: start: 20191012, end: 20191231
  8. TISAGENLECLEUCEL. [Suspect]
     Active Substance: TISAGENLECLEUCEL
     Indication: NON-HODGKIN^S LYMPHOMA
     Dosage: 2.5 X10^8, ONCE/SINGLE
     Route: 042
     Dates: start: 20191203
  9. CLOTRIMAZOL [Concomitant]
     Active Substance: CLOTRIMAZOLE
     Indication: RASH MACULO-PAPULAR
     Dosage: UNK
     Route: 065
     Dates: start: 20191217
  10. ONDANSETRON [Concomitant]
     Active Substance: ONDANSETRON
     Indication: NAUSEA
     Dosage: UNK
     Route: 065
     Dates: start: 20191224
  11. VANCOMYCIN [Concomitant]
     Active Substance: VANCOMYCIN
     Indication: DIARRHOEA
     Dosage: UNK
     Route: 065
     Dates: start: 20200102, end: 20200112
  12. NORMAL SALINE [Concomitant]
     Active Substance: SODIUM CHLORIDE
     Indication: CYTOKINE RELEASE SYNDROME
     Dosage: UNK
     Route: 065
     Dates: start: 20200102, end: 20200103
  13. COLOXYL C SENNA [Concomitant]
     Active Substance: DOCUSATE SODIUM\SENNOSIDES A AND B
     Indication: CONSTIPATION PROPHYLAXIS
     Dosage: UNK
     Route: 065
     Dates: start: 20190401
  14. VALACICLOVIR [Concomitant]
     Active Substance: VALACYCLOVIR HYDROCHLORIDE
     Indication: ANTIVIRAL PROPHYLAXIS
     Dosage: UNK
     Route: 065
     Dates: start: 20190401
  15. FLUDARABINE [Concomitant]
     Active Substance: FLUDARABINE PHOSPHATE
     Indication: CHEMOTHERAPY
     Dosage: UNK
     Route: 065
     Dates: start: 20191127, end: 20191127
  16. ETOPOSIDE. [Suspect]
     Active Substance: ETOPOSIDE
     Indication: NON-HODGKIN^S LYMPHOMA
     Dosage: 204 MG, ONCE/SINGLE
     Route: 042
     Dates: start: 20191010
  17. PARACETAMOL [Concomitant]
     Active Substance: ACETAMINOPHEN
     Indication: INFUSION RELATED REACTION
     Dosage: UNK
     Route: 065
     Dates: start: 20191011
  18. CYCLOPHOSPHAMIDE. [Concomitant]
     Active Substance: CYCLOPHOSPHAMIDE
     Indication: CHEMOTHERAPY
     Dosage: UNK
     Route: 065
     Dates: start: 20191127, end: 20191127
  19. IFOSFAMIDE. [Suspect]
     Active Substance: IFOSFAMIDE
     Indication: NON-HODGKIN^S LYMPHOMA
     Dosage: 10140 MG, CONT
     Route: 042
     Dates: start: 20191012
  20. PANTOPRAZOLE [Concomitant]
     Active Substance: PANTOPRAZOLE
     Indication: GASTRITIS PROPHYLAXIS
     Dosage: UNK
     Route: 065
     Dates: start: 20191009, end: 20200105
  21. FLUDARABINE [Concomitant]
     Active Substance: FLUDARABINE PHOSPHATE
     Dosage: UNK
     Route: 065
     Dates: start: 20191129, end: 20191129
  22. MESNA. [Suspect]
     Active Substance: MESNA
     Indication: NON-HODGKIN^S LYMPHOMA
     Dosage: 10200 MG, CONT
     Route: 042
     Dates: start: 20191012
  23. FILGRASTIM [Concomitant]
     Active Substance: FILGRASTIM
     Indication: BONE MARROW FAILURE
  24. METOCLOPRAMIDE. [Concomitant]
     Active Substance: METOCLOPRAMIDE
     Indication: NAUSEA
     Dosage: UNK
     Route: 065
     Dates: start: 20191011
  25. BACTRIM DS [Concomitant]
     Active Substance: SULFAMETHOXAZOLE\TRIMETHOPRIM
     Indication: PROPHYLAXIS
     Dosage: UNK
     Route: 065
     Dates: start: 20191113, end: 20200105
  26. CARBOPLATIN. [Suspect]
     Active Substance: CARBOPLATIN
     Indication: NON-HODGKIN^S LYMPHOMA
     Dosage: 700 MG, ONCE/SINGLE
     Route: 042
     Dates: start: 20191011
  27. PROMETHAZINE [Concomitant]
     Active Substance: PROMETHAZINE HYDROCHLORIDE
     Indication: INFUSION RELATED REACTION
     Dosage: UNK
     Route: 065
     Dates: start: 20191219, end: 20191219
  28. ENOXAPARIN [Concomitant]
     Active Substance: ENOXAPARIN
     Indication: THROMBOSIS PROPHYLAXIS
     Dosage: UNK
     Route: 065
     Dates: start: 20191219, end: 20191220
  29. MEROPENEM. [Concomitant]
     Active Substance: MEROPENEM
     Indication: DEVICE RELATED INFECTION
     Dosage: UNK
     Route: 065
     Dates: start: 20191219, end: 20191221
  30. FILGRASTIM [Concomitant]
     Active Substance: FILGRASTIM
     Indication: NEUTROPHIL COUNT DECREASED
     Dosage: UNK
     Route: 065
     Dates: start: 20200103, end: 20200115
  31. CYCLOPHOSPHAMIDE. [Concomitant]
     Active Substance: CYCLOPHOSPHAMIDE
     Dosage: UNK
     Route: 065
     Dates: start: 20191128, end: 20191128
  32. CYCLOPHOSPHAMIDE. [Concomitant]
     Active Substance: CYCLOPHOSPHAMIDE
     Dosage: UNK
     Route: 065
     Dates: start: 20191129, end: 20191129
  33. FLUDARABINE [Concomitant]
     Active Substance: FLUDARABINE PHOSPHATE
     Dosage: UNK
     Route: 065
     Dates: start: 20191128, end: 20191128

REACTIONS (3)
  - Neutrophil count decreased [Unknown]
  - Anaemia [Recovered/Resolved]
  - Thrombocytopenia [Unknown]

NARRATIVE: CASE EVENT DATE: 20200102
